FAERS Safety Report 5872188-7 (Version None)
Quarter: 2008Q3

REPORT INFORMATION
  Report Type: 
  Country: None (occurrence: None)
  Receive Date: 20080905
  Receipt Date: 20080829
  Transmission Date: 20090109
  Serious: Yes (Hospitalization)
  Sender: FDA-Public Use
  Company Number: JP-JNJFOC-20080707457

PATIENT
  Sex: Female
  Weight: 52 kg

DRUGS (7)
  1. RISPERDAL [Suspect]
     Indication: INSOMNIA
     Route: 048
  2. RISPERDAL [Suspect]
     Indication: DELIRIUM
     Route: 048
  3. MIANSERIN [Suspect]
     Route: 065
  4. MIANSERIN [Suspect]
     Indication: DELIRIUM
     Route: 065
  5. VALPROIC ACID [Suspect]
     Indication: IRRITABILITY
     Dosage: DOSE INCREASED
     Route: 065
  6. VALPROIC ACID [Suspect]
     Indication: DEPRESSED MOOD
     Route: 065
  7. PAROXETINE HYDROCHLORIDE [Concomitant]
     Route: 065

REACTIONS (7)
  - CHOLECYSTITIS [None]
  - DELIRIUM [None]
  - DYSPHAGIA [None]
  - HEPATIC FUNCTION ABNORMAL [None]
  - IRRITABILITY [None]
  - PNEUMONIA ASPIRATION [None]
  - SEDATION [None]
